FAERS Safety Report 5816630-6 (Version None)
Quarter: 2008Q3

REPORT INFORMATION
  Report Type: 
  Country: None (occurrence: None)
  Receive Date: 20080721
  Receipt Date: 20080721
  Transmission Date: 20090109
  Serious: Yes (Death)
  Sender: FDA-Public Use
  Company Number: NL-ABBOTT-08P-114-0439880-00

PATIENT
  Sex: Female

DRUGS (15)
  1. HUMIRA [Suspect]
     Indication: RHEUMATOID ARTHRITIS
     Route: 058
     Dates: start: 20040303, end: 20040831
  2. TOLBUTAMIDE ACTAVIS TABLET [Concomitant]
     Indication: DRUG USE FOR UNKNOWN INDICATION
     Route: 048
     Dates: end: 20040831
  3. FERO GRADUMET TABLET MGA FE [Concomitant]
     Indication: DRUG USE FOR UNKNOWN INDICATION
     Route: 048
     Dates: start: 20040519, end: 20040831
  4. AMLODIPINE ACTAVIS TABLET [Concomitant]
     Indication: DRUG USE FOR UNKNOWN INDICATION
     Route: 048
     Dates: start: 20040615, end: 20040831
  5. ENALAPRIL MALEAAT ACTAVIS TABLET [Concomitant]
     Indication: DRUG USE FOR UNKNOWN INDICATION
     Route: 048
     Dates: end: 20040831
  6. FOLIC ACID ACTAVIS TABLET [Concomitant]
     Indication: DRUG USE FOR UNKNOWN INDICATION
     Route: 048
     Dates: end: 20040831
  7. THYRAX DUOTABLET [Concomitant]
     Indication: DRUG USE FOR UNKNOWN INDICATION
     Route: 048
     Dates: end: 20040831
  8. FLOXACILLIN SODIUM [Concomitant]
     Indication: DRUG USE FOR UNKNOWN INDICATION
     Route: 048
     Dates: start: 20040823, end: 20040831
  9. FUROSEMIDE ACTAVIS TABLET [Concomitant]
     Indication: DRUG USE FOR UNKNOWN INDICATION
     Route: 048
     Dates: start: 20040809, end: 20040831
  10. DIDROKIT [Concomitant]
     Indication: DRUG USE FOR UNKNOWN INDICATION
     Route: 048
     Dates: start: 20040829, end: 20040831
  11. HYDROCHLOROTHIAZIDE ACTAVIS TABLET [Concomitant]
     Indication: DRUG USE FOR UNKNOWN INDICATION
     Route: 048
     Dates: end: 20040831
  12. HYDROCHLOROTHIAZIDE ACTAVIS TABLET [Concomitant]
  13. HYDROCHLOROTHIAZIDE ACTAVIS TABLET [Concomitant]
     Dates: end: 20040831
  14. NAPROXEN ACTAVIS TABLET MSR [Concomitant]
     Indication: DRUG USE FOR UNKNOWN INDICATION
     Route: 048
     Dates: end: 20040831
  15. PREDNISOLON ACTAVIS TABLET [Concomitant]
     Indication: DRUG USE FOR UNKNOWN INDICATION
     Route: 048
     Dates: end: 20040831

REACTIONS (4)
  - CARDIAC FAILURE [None]
  - DECUBITUS ULCER [None]
  - RENAL DISORDER [None]
  - SUDDEN DEATH [None]
